FAERS Safety Report 20907483 (Version 3)
Quarter: 2022Q2

REPORT INFORMATION
  Report Type: Spontaneous
  Country: US (occurrence: US)
  Receive Date: 20220602
  Receipt Date: 20220624
  Transmission Date: 20220721
  Serious: No
  Sender: FDA-Public Use
  Company Number: US-BIOMARINAP-US-2022-143578

PATIENT

DRUGS (1)
  1. NAGLAZYME [Suspect]
     Active Substance: GALSULFASE
     Indication: Product used for unknown indication
     Route: 065

REACTIONS (5)
  - Arthropod bite [Not Recovered/Not Resolved]
  - Contusion [Not Recovered/Not Resolved]
  - Mass [Not Recovered/Not Resolved]
  - Rash papular [Not Recovered/Not Resolved]
  - Rash erythematous [Not Recovered/Not Resolved]
